FAERS Safety Report 20365177 (Version 17)
Quarter: 2023Q4

REPORT INFORMATION
  Report Type: Spontaneous
  Country: CA (occurrence: CA)
  Receive Date: 20220122
  Receipt Date: 20231223
  Transmission Date: 20240110
  Serious: Yes (Other)
  Sender: FDA-Public Use
  Company Number: CA-CELLTRION INC.-2021CA017707

PATIENT

DRUGS (33)
  1. INFLECTRA [Suspect]
     Active Substance: INFLIXIMAB-DYYB
     Indication: Crohn^s disease
     Dosage: 5 MG/KG, INDUCTION AT WEEK 0, 2, 6, THEN EVERY 8 WEEKS
     Route: 042
     Dates: start: 20180719, end: 20190802
  2. INFLECTRA [Suspect]
     Active Substance: INFLIXIMAB-DYYB
     Dosage: 5 MG/KG, EVERY 6 WEEKS
     Route: 042
     Dates: start: 20190913, end: 20191025
  3. INFLECTRA [Suspect]
     Active Substance: INFLIXIMAB-DYYB
     Dosage: 10 MG/KG, EVERY 8 WEEKS
     Route: 042
     Dates: start: 20191220, end: 20200213
  4. INFLECTRA [Suspect]
     Active Substance: INFLIXIMAB-DYYB
     Dosage: 7.5 MG/KG , EVERY 8 WEEKS
     Route: 042
     Dates: start: 20200409
  5. INFLECTRA [Suspect]
     Active Substance: INFLIXIMAB-DYYB
     Dosage: 750 MG, EVERY 8 WEEKS
     Route: 042
     Dates: start: 20211029
  6. INFLECTRA [Suspect]
     Active Substance: INFLIXIMAB-DYYB
     Dosage: 750 MG, EVERY 8 WEEKS
     Route: 042
     Dates: start: 20211222
  7. INFLECTRA [Suspect]
     Active Substance: INFLIXIMAB-DYYB
     Dosage: 7.5 MG/KG, EVERY 8 WEEKS
     Route: 042
     Dates: start: 20220218
  8. INFLECTRA [Suspect]
     Active Substance: INFLIXIMAB-DYYB
     Dosage: 7.5 MG/KG, EVERY 8 WEEKS
     Route: 042
     Dates: start: 20220218
  9. INFLECTRA [Suspect]
     Active Substance: INFLIXIMAB-DYYB
     Dosage: 7.5 MG/KG, EVERY 8 WEEKS
     Route: 042
     Dates: start: 20220218
  10. INFLECTRA [Suspect]
     Active Substance: INFLIXIMAB-DYYB
     Dosage: 7.5 MG/KG, EVERY 8 WEEKS
     Route: 042
     Dates: start: 20220218
  11. INFLECTRA [Suspect]
     Active Substance: INFLIXIMAB-DYYB
     Dosage: 7.5 MG/KG, EVERY 8 WEEKS
     Route: 042
     Dates: start: 20220418
  12. INFLECTRA [Suspect]
     Active Substance: INFLIXIMAB-DYYB
     Dosage: 7.5 MG/KG, EVERY 8 WEEKS
     Route: 042
     Dates: start: 20220610
  13. INFLECTRA [Suspect]
     Active Substance: INFLIXIMAB-DYYB
     Dosage: 7.5 MG/KG, EVERY 8 WEEKS
     Route: 042
     Dates: start: 20220805
  14. INFLECTRA [Suspect]
     Active Substance: INFLIXIMAB-DYYB
     Dosage: 7.5 MG/KG, EVERY 8 WEEKS
     Route: 042
     Dates: start: 20221125
  15. INFLECTRA [Suspect]
     Active Substance: INFLIXIMAB-DYYB
     Dosage: 7.5MG/KG, EVERY 8 WEEK
     Route: 042
     Dates: start: 20230120
  16. INFLECTRA [Suspect]
     Active Substance: INFLIXIMAB-DYYB
     Dosage: 7.5MG/KG, EVERY 8 WEEK
     Route: 042
     Dates: start: 20230120
  17. INFLECTRA [Suspect]
     Active Substance: INFLIXIMAB-DYYB
     Dosage: 7.5MG/KG (760MG), EVERY 8 WEEKS
     Route: 042
     Dates: start: 20230317, end: 20230317
  18. INFLECTRA [Suspect]
     Active Substance: INFLIXIMAB-DYYB
     Dosage: 750MG, Q8 WEEKS
     Route: 042
     Dates: start: 20230512
  19. INFLECTRA [Suspect]
     Active Substance: INFLIXIMAB-DYYB
     Dosage: 7.5 MG/KG (750 MG), EVERY 8 WEEKS
     Route: 042
     Dates: start: 20230707, end: 20230707
  20. INFLECTRA [Suspect]
     Active Substance: INFLIXIMAB-DYYB
     Dosage: 758 MG (7.5 MG/KG), EVERY 8 WEEKS (7 WEEKS AND 6 DAYS)
     Route: 042
     Dates: start: 20230831, end: 20230831
  21. INFLECTRA [Suspect]
     Active Substance: INFLIXIMAB-DYYB
     Dosage: 758MG (7.5 MG/KG) EVERY 4 WEEKS
     Route: 042
     Dates: start: 20231012
  22. INFLECTRA [Suspect]
     Active Substance: INFLIXIMAB-DYYB
     Dosage: 760MG (7.5 MG/KG) EVERY 4 WEEKS
     Route: 042
     Dates: start: 20231110
  23. INFLECTRA [Suspect]
     Active Substance: INFLIXIMAB-DYYB
     Dosage: 760MG (7.5 MG/KG) EVERY 4 WEEKS
     Route: 042
     Dates: start: 20231110
  24. INFLECTRA [Suspect]
     Active Substance: INFLIXIMAB-DYYB
     Dosage: 750MG (7.5 MG/KG), 4 WEEKS AND 3 DAYS
     Route: 042
     Dates: start: 20231211
  25. FOLIC ACID [Concomitant]
     Active Substance: FOLIC ACID
     Dosage: 1 DF (DOSAGE NOT AVAILABLE)
     Route: 065
  26. HYDROCORTISONE [Concomitant]
     Active Substance: HYDROCORTISONE
     Indication: Premedication
     Dosage: 100 MG
     Dates: start: 20211222, end: 20211222
  27. HYDROCORTISONE [Concomitant]
     Active Substance: HYDROCORTISONE
     Dosage: 100 MG
     Route: 042
     Dates: start: 20230317, end: 20230317
  28. HYDROCORTISONE [Concomitant]
     Active Substance: HYDROCORTISONE
     Dosage: 100 MG
     Dates: start: 20230707, end: 20230707
  29. METHYLPREDNISOLONE [Concomitant]
     Active Substance: METHYLPREDNISOLONE
     Indication: Premedication
     Dosage: UNK
     Dates: start: 20230831, end: 20230831
  30. CHOLESTYRAMINE [Concomitant]
     Active Substance: CHOLESTYRAMINE
     Dosage: 1 DF, 1X/DAY, 1 PACK PER DAY
     Route: 065
  31. AMLODIPINE BESYLATE [Concomitant]
     Active Substance: AMLODIPINE BESYLATE
     Dosage: 1 DF (DOSAGE NOT AVAILABLE)
     Route: 065
  32. TELMISARTAN [Concomitant]
     Active Substance: TELMISARTAN
     Dosage: 1 DF (DOSAGE NOT AVAILABLE)
     Route: 065
  33. SOLU-CORTEF [Concomitant]
     Active Substance: HYDROCORTISONE SODIUM SUCCINATE
     Indication: Premedication
     Dosage: 100 MG
     Dates: start: 20221125

REACTIONS (22)
  - Uveitis [Recovered/Resolved]
  - Vein rupture [Unknown]
  - Limb injury [Unknown]
  - Productive cough [Not Recovered/Not Resolved]
  - Blood pressure increased [Not Recovered/Not Resolved]
  - Blood pressure systolic increased [Not Recovered/Not Resolved]
  - Pneumonia [Recovered/Resolved]
  - Off label use [Unknown]
  - Intentional product use issue [Unknown]
  - Off label use [Unknown]
  - Inappropriate schedule of product administration [Unknown]
  - Heart rate decreased [Not Recovered/Not Resolved]
  - Poor venous access [Unknown]
  - Arthralgia [Recovered/Resolved]
  - Asthenia [Not Recovered/Not Resolved]
  - Hypertension [Not Recovered/Not Resolved]
  - Weight increased [Not Recovered/Not Resolved]
  - Dry skin [Unknown]
  - Skin fissures [Not Recovered/Not Resolved]
  - Fatigue [Not Recovered/Not Resolved]
  - Infusion site extravasation [Unknown]
  - COVID-19 [Recovered/Resolved]

NARRATIVE: CASE EVENT DATE: 20190913
